FAERS Safety Report 7860926-3 (Version None)
Quarter: 2011Q4

REPORT INFORMATION
  Report Type: 
  Country: None (occurrence: None)
  Receive Date: 20111027
  Receipt Date: 20111025
  Transmission Date: 20120403
  Serious: Yes (Hospitalization, Other)
  Sender: FDA-Public Use
  Company Number: US-MERCK-1102USA02269

PATIENT
  Age: 52 Year
  Sex: Female
  Weight: 89 kg

DRUGS (42)
  1. TAMOXIFEN CITRATE [Concomitant]
     Indication: BREAST CANCER
     Dosage: ALSO REPORTED AS ^10 MG DAILY^
     Route: 065
     Dates: end: 20020921
  2. CALCIUM (UNSPECIFIED) AND VITAMIN D (UNSPECIFIED) [Concomitant]
     Route: 065
  3. MINERALS (UNSPECIFIED) AND VITAMINS (UNSPECIFIED) [Concomitant]
     Route: 065
  4. ALENDRONATE SODIUM [Suspect]
     Route: 048
     Dates: start: 20080819
  5. AZITHROMYCIN [Concomitant]
     Dosage: FOR 4 DAYS
     Route: 048
  6. ASCORBIC ACID [Concomitant]
     Route: 065
  7. LIPITOR [Concomitant]
     Route: 048
  8. MOBIC [Concomitant]
     Route: 065
     Dates: end: 20050601
  9. CHOLECALCIFEROL [Concomitant]
     Dosage: AT 6PM
     Route: 065
  10. ROZEREM [Concomitant]
     Dosage: PRN
     Route: 065
  11. PAXIL [Concomitant]
     Dosage: 20
     Route: 065
  12. ERGOCALCIFEROL [Concomitant]
     Route: 048
  13. FOSAMAX [Suspect]
     Indication: OSTEOPENIA
     Route: 048
     Dates: start: 19980101, end: 20100101
  14. [THERAPY UNSPECIFIED] [Concomitant]
     Dosage: NOVODEX
     Route: 065
  15. WIGRAINE (CAFFEINE (+) ERGOTAMINE TARTRATE) [Concomitant]
     Indication: HEADACHE
     Dosage: 2 AT ONSET
     Route: 065
  16. ASCORBIC ACID AND ROSE HIPS [Concomitant]
     Route: 065
  17. NASACORT [Concomitant]
     Route: 065
  18. ASPIRIN [Concomitant]
     Route: 065
  19. DESYREL [Concomitant]
     Route: 048
  20. OMEPRAZOLE [Concomitant]
     Route: 065
     Dates: start: 20040101
  21. ACIPHEX [Concomitant]
     Route: 065
     Dates: start: 20010101, end: 20030101
  22. SOLODYN [Concomitant]
     Route: 065
     Dates: start: 20090101
  23. ALLEGRA [Concomitant]
     Indication: HYPERSENSITIVITY
     Route: 065
     Dates: start: 20090101
  24. VITAMIN E [Concomitant]
     Route: 065
  25. ATIVAN [Concomitant]
     Route: 065
  26. FOSAMAX [Suspect]
     Indication: OSTEOPOROSIS
     Route: 048
     Dates: start: 19980101, end: 20100101
  27. VICODIN [Concomitant]
     Route: 065
     Dates: start: 20070101
  28. CAFERGOT [Concomitant]
     Route: 048
     Dates: start: 20070101
  29. FEMARA [Concomitant]
     Route: 065
     Dates: start: 20070101, end: 20081001
  30. VITAMINS (UNSPECIFIED) [Concomitant]
     Route: 048
  31. OMEGA-3 MARINE TRIGLYCERIDES [Concomitant]
     Route: 065
  32. SODIUM CHLORIDE [Concomitant]
     Route: 065
  33. IBUPROFEN [Concomitant]
     Route: 065
  34. PRILOSEC [Concomitant]
     Route: 048
  35. RECLAST [Concomitant]
     Indication: OSTEOPOROSIS
     Dosage: 1
     Route: 041
     Dates: start: 20090114
  36. AMOXICILLIN [Concomitant]
     Route: 065
     Dates: start: 20040101
  37. LEVAQUIN [Concomitant]
     Route: 065
  38. CLINDAMYCIN [Concomitant]
     Route: 065
     Dates: start: 20090101
  39. VITAMIN D (UNSPECIFIED) [Concomitant]
     Route: 065
  40. [THERAPY UNSPECIFIED] [Concomitant]
     Dosage: CALCIUM W/ VITAMIN E
     Route: 065
  41. PAROXETINE [Concomitant]
     Route: 048
  42. TYLENOL-500 [Concomitant]
     Route: 065

REACTIONS (66)
  - CHOLECYSTITIS CHRONIC [None]
  - NOCTURIA [None]
  - SALPINGITIS [None]
  - BRONCHITIS [None]
  - EXOSTOSIS [None]
  - GASTRIC POLYPS [None]
  - PROCEDURAL NAUSEA [None]
  - HIP FRACTURE [None]
  - MUSCULOSKELETAL CHEST PAIN [None]
  - OVARIAN CYST [None]
  - HAEMOGLOBIN DECREASED [None]
  - TENDONITIS [None]
  - HYPERSENSITIVITY [None]
  - GASTROOESOPHAGEAL REFLUX DISEASE [None]
  - HERPES ZOSTER [None]
  - RHEUMATOID ARTHRITIS [None]
  - WEIGHT DECREASED [None]
  - OSTEOARTHRITIS [None]
  - OESOPHAGITIS [None]
  - NAUSEA [None]
  - MERALGIA PARAESTHETICA [None]
  - LIGAMENT SPRAIN [None]
  - COLITIS [None]
  - HAEMORRHAGIC ANAEMIA [None]
  - CHOLELITHIASIS [None]
  - HYPERTENSION [None]
  - ENDODONTIC PROCEDURE [None]
  - VITAMIN D DEFICIENCY [None]
  - MAMMOGRAM ABNORMAL [None]
  - HAEMORRHOIDS [None]
  - FALL [None]
  - BONE METABOLISM DISORDER [None]
  - INCISIONAL HERNIA [None]
  - NEPHROLITHIASIS [None]
  - BREAST ENLARGEMENT [None]
  - CLUSTER HEADACHE [None]
  - GINGIVAL DISORDER [None]
  - GASTRITIS [None]
  - PULMONARY CALCIFICATION [None]
  - PROCEDURAL VOMITING [None]
  - TENOSYNOVITIS [None]
  - OTITIS MEDIA [None]
  - TIBIA FRACTURE [None]
  - IMPAIRED HEALING [None]
  - SYNOVITIS [None]
  - RECTAL POLYP [None]
  - VOMITING [None]
  - DEEP VEIN THROMBOSIS [None]
  - BURSITIS [None]
  - TREATMENT NONCOMPLIANCE [None]
  - SINUS CONGESTION [None]
  - RENAL DISORDER [None]
  - DIVERTICULUM [None]
  - HYPOTHYROIDISM [None]
  - RENAL CYST [None]
  - PULMONARY GRANULOMA [None]
  - PAIN IN EXTREMITY [None]
  - STRESS FRACTURE [None]
  - BREAST DISORDER [None]
  - FEMUR FRACTURE [None]
  - HYPERCHOLESTEROLAEMIA [None]
  - RHINITIS ALLERGIC [None]
  - ORAL DISORDER [None]
  - INSOMNIA [None]
  - BACK PAIN [None]
  - ARTHRITIS [None]
